FAERS Safety Report 7577153-X (Version None)
Quarter: 2011Q2

REPORT INFORMATION
  Report Type: 
  Country: None (occurrence: None)
  Receive Date: 20110628
  Receipt Date: 20110531
  Transmission Date: 20111010
  Serious: Yes (Other)
  Sender: FDA-Public Use
  Company Number: JP-BAYER-2011-036054

PATIENT
  Age: 71 Year
  Sex: Male
  Weight: 64 kg

DRUGS (12)
  1. LEUPROLIDE ACETATE [Concomitant]
     Indication: PROSTATE CANCER
     Dosage: DAILY DOSE 11.25 MG
     Route: 058
  2. PORTOLAC [Concomitant]
     Indication: HYPERAMMONAEMIA
     Dosage: DAILY DOSE 6 DF
     Route: 048
  3. RABEPRAZOLE SODIUM [Concomitant]
     Indication: GASTRIC ULCER
     Dosage: 10 MG, UNK
     Route: 048
  4. OXYCONTIN [Concomitant]
     Indication: PAIN
     Dosage: DAILY DOSE 30 MG
     Route: 048
  5. NEXAVAR [Suspect]
     Indication: HEPATIC NEOPLASM MALIGNANT
     Dosage: DAILY DOSE 400 MG
     Route: 048
     Dates: start: 20110418, end: 20110424
  6. MAGMITT [Concomitant]
     Indication: CONSTIPATION
     Dosage: DAILY DOSE 990 MG
     Route: 048
  7. LYRICA [Concomitant]
     Indication: NEURALGIA
     Dosage: 200 MG, UNK
     Route: 048
  8. ETODOLAC [Concomitant]
     Indication: PAIN
     Dosage: 400 MG, UNK
     Route: 048
  9. NEXAVAR [Suspect]
     Dosage: DAILY DOSE 400 MG
     Route: 048
     Dates: start: 20110427, end: 20110502
  10. SENNOSIDE [Concomitant]
     Indication: CONSTIPATION
     Dosage: DAILY DOSE 24 MG
     Route: 048
  11. NEXAVAR [Suspect]
     Dosage: DAILY DOSE 600 MG
     Route: 048
     Dates: start: 20110425, end: 20110426
  12. ODYNE [Concomitant]
     Indication: PROSTATE CANCER
     Dosage: DAILY DOSE 375 MG
     Route: 048

REACTIONS (9)
  - BLOOD POTASSIUM INCREASED [None]
  - LIVER FUNCTION TEST ABNORMAL [None]
  - ASTERIXIS [None]
  - WHITE BLOOD CELL COUNT DECREASED [None]
  - LOGORRHOEA [None]
  - FEELING ABNORMAL [None]
  - HEPATIC ENCEPHALOPATHY [None]
  - PROTEIN TOTAL INCREASED [None]
  - RESTLESSNESS [None]
